FAERS Safety Report 8762742 (Version 1)
Quarter: 2012Q4

REPORT INFORMATION
  Report Type: Report from Study
  Country: JP (occurrence: JP)
  Receive Date: 20120830
  Receipt Date: 20120830
  Transmission Date: 20130627
  Serious: Yes (Other)
  Sender: FDA-Public Use
  Company Number: JP-MERCK-1208JPN008605

PATIENT

DRUGS (2)
  1. INDACIN I.V. [Suspect]
     Indication: PROPHYLAXIS
     Dosage: 0.1 mg/kg, UNK
     Route: 042
  2. MENATETRENONE [Suspect]
     Indication: PROPHYLAXIS
     Dosage: UNK
     Route: 042

REACTIONS (2)
  - Patent ductus arteriosus repair [Unknown]
  - Drug ineffective [Unknown]
